FAERS Safety Report 6760480-3 (Version None)
Quarter: 2010Q2

REPORT INFORMATION
  Report Type: 
  Country: None (occurrence: None)
  Receive Date: 20100602
  Receipt Date: 20091213
  Transmission Date: 20101027
  Serious: Yes (Other)
  Sender: FDA-Public Use
  Company Number: CTI_01101_2009

PATIENT
  Sex: Female

DRUGS (1)
  1. FACTIVE [Suspect]
     Indication: DRUG USE FOR UNKNOWN INDICATION
     Dosage: (5 DAY - 320 MG)

REACTIONS (4)
  - DYSPNOEA [None]
  - RASH [None]
  - SUNBURN [None]
  - TACHYCARDIA [None]
